FAERS Safety Report 7473141-2 (Version None)
Quarter: 2011Q2

REPORT INFORMATION
  Report Type: 
  Country: None (occurrence: None)
  Receive Date: 20110511
  Receipt Date: 20110506
  Transmission Date: 20111010
  Serious: Yes (Death, Hospitalization, Other)
  Sender: FDA-Public Use
  Company Number: PHHY2011PL38153

PATIENT
  Age: 12 Month
  Sex: Female

DRUGS (2)
  1. VALPROIC ACID [Suspect]
     Indication: EPILEPSY
     Dosage: UNK UKN, UNK
  2. ANTIEPILEPTICS [Concomitant]
     Indication: EPILEPSY
     Dosage: UNK UKN, UNK

REACTIONS (13)
  - GENE MUTATION [None]
  - ALPERS' DISEASE [None]
  - JAUNDICE [None]
  - ASCITES [None]
  - TOXICITY TO VARIOUS AGENTS [None]
  - CONVULSION [None]
  - ELECTROENCEPHALOGRAM ABNORMAL [None]
  - CEREBRAL ATROPHY [None]
  - HEPATIC FAILURE [None]
  - BLOOD BILIRUBIN INCREASED [None]
  - COAGULOPATHY [None]
  - CYTOMEGALOVIRUS INFECTION [None]
  - HYPOTONIA [None]
